FAERS Safety Report 9642720 (Version 1)
Quarter: 2013Q4

REPORT INFORMATION
  Report Type: Spontaneous
  Country: DE (occurrence: DE)
  Receive Date: 20131024
  Receipt Date: 20131024
  Transmission Date: 20140711
  Serious: Yes (Other)
  Sender: FDA-Public Use
  Company Number: DE-MYLANLABS-2013S1023654

PATIENT
  Age: 37 Year
  Sex: Female
  Weight: 62 kg

DRUGS (5)
  1. RAMIPRIL [Suspect]
     Indication: HYPERTENSION
     Route: 048
  2. OBSIDAN /00023514/ [Suspect]
     Indication: HYPERTENSION
     Dosage: 50 [MG/D ]
     Route: 048
     Dates: start: 20090820, end: 20100412
  3. DOPEGYT [Suspect]
     Indication: HYPERTENSION
     Dosage: 1500 [MG/D ]/ ZUNACHST 250MG/D, KURZ VOR GEBURT MAX. 6 X 250 MG/D
     Route: 048
     Dates: start: 20090922, end: 20100412
  4. UTROGEST [Suspect]
     Indication: ABORTION THREATENED
     Dosage: 100 [MG/D ]
     Route: 048
     Dates: start: 20091105, end: 20091126
  5. FOLIC ACID [Concomitant]
     Indication: PROPHYLAXIS OF NEURAL TUBE DEFECT
     Dosage: 0.8 [MG/D ]
     Route: 048

REACTIONS (3)
  - Exposure during pregnancy [Unknown]
  - Pre-eclampsia [Unknown]
  - Gestational diabetes [Unknown]
